FAERS Safety Report 4488139-6 (Version None)
Quarter: 2004Q4

REPORT INFORMATION
  Report Type: 
  Country: None (occurrence: None)
  Receive Date: 20041022
  Receipt Date: 20040704
  Transmission Date: 20050328
  Serious: Yes (Death, Hospitalization)
  Sender: FDA-Public Use
  Company Number: DE-YAMANOUCHI-YEHQ20040234

PATIENT
  Age: 76 Year
  Sex: Male

DRUGS (3)
  1. ELIGARD [Suspect]
     Indication: PROSTATE CANCER
     Dosage: 7.5 MG
     Route: 058
     Dates: start: 20040609, end: 20040609
  2. HYDROCHLOROTHIAZID [Concomitant]
  3. ESTRAMUSTINE [Concomitant]

REACTIONS (11)
  - ABDOMINAL PAIN UPPER [None]
  - BACK PAIN [None]
  - DISSEMINATED INTRAVASCULAR COAGULATION [None]
  - DYSPNOEA [None]
  - GASTROINTESTINAL HAEMORRHAGE [None]
  - GENERAL PHYSICAL CONDITION ABNORMAL [None]
  - HAEMATEMESIS [None]
  - HAEMATOMA [None]
  - NAUSEA [None]
  - PALLOR [None]
  - VENTRICULAR FIBRILLATION [None]
